FAERS Safety Report 17763061 (Version 2)
Quarter: 2020Q4

REPORT INFORMATION
  Report Type: Report from Study
  Country: None (occurrence: AU)
  Receive Date: 20200508
  Receipt Date: 20201021
  Transmission Date: 20210113
  Serious: Yes (Death, Life-Threatening)
  Sender: FDA-Public Use
  Company Number: AU-ABBVIE-18P-008-3128654-00

PATIENT
  Age: 42 Year
  Sex: Female
  Weight: 44 kg

DRUGS (12)
  1. IMATINIB. [Concomitant]
     Active Substance: IMATINIB MESYLATE
     Indication: ACUTE LYMPHOCYTIC LEUKAEMIA
     Route: 048
     Dates: start: 20180626
  2. IBRUTINIB [Suspect]
     Active Substance: IBRUTINIB
     Indication: CHRONIC GRAFT VERSUS HOST DISEASE
     Route: 048
     Dates: start: 20180913, end: 20181215
  3. COLECALCIFEROL [Concomitant]
     Active Substance: CHOLECALCIFEROL
     Indication: PROPHYLAXIS
     Route: 048
     Dates: start: 20180221
  4. PREDNISONE. [Suspect]
     Active Substance: PREDNISONE
     Indication: CHRONIC GRAFT VERSUS HOST DISEASE
     Route: 048
     Dates: start: 20180913, end: 20181215
  5. CALCIUM CITRATE [Concomitant]
     Active Substance: CALCIUM CITRATE
     Indication: HYPOCALCAEMIA
     Route: 048
     Dates: start: 20180227
  6. POSACONAZOLE [Concomitant]
     Active Substance: POSACONAZOLE
     Indication: INFECTION PROPHYLAXIS
     Route: 048
     Dates: start: 20180411
  7. IMMUNOGLOBULIN [Concomitant]
     Indication: INFECTION PROPHYLAXIS
     Route: 042
     Dates: start: 20180410
  8. PENICILLIN [Concomitant]
     Active Substance: PENICILLIN
     Indication: INFECTION PROPHYLAXIS
     Route: 048
     Dates: start: 20180310
  9. MAGMIN [Concomitant]
     Active Substance: MAGNESIUM ASPARTATE
     Indication: PROPHYLAXIS
     Route: 048
     Dates: start: 20180227
  10. BACTRIM [Concomitant]
     Active Substance: SULFAMETHOXAZOLE\TRIMETHOPRIM
     Indication: INFECTION PROPHYLAXIS
     Dosage: 1  TABLET, BI-WEEKLY
     Route: 048
     Dates: start: 20180310
  11. VALACYCLOVIR [Concomitant]
     Active Substance: VALACYCLOVIR HYDROCHLORIDE
     Indication: INFECTION PROPHYLAXIS
     Route: 048
     Dates: start: 20180818
  12. FOLIC ACID. [Concomitant]
     Active Substance: FOLIC ACID
     Indication: SUPPLEMENTATION THERAPY
     Route: 048
     Dates: start: 20180411

REACTIONS (2)
  - Ischaemic stroke [Fatal]
  - Respiratory tract infection [Not Recovered/Not Resolved]

NARRATIVE: CASE EVENT DATE: 20181215
